FAERS Safety Report 9066762 (Version 1)
Quarter: 2013Q1

REPORT INFORMATION
  Report Type: Spontaneous
  Country: US (occurrence: US)
  Receive Date: 20130214
  Receipt Date: 20130214
  Transmission Date: 20140127
  Serious: Yes (Other)
  Sender: FDA-Public Use
  Company Number: US-GLAXOSMITHKLINE-A1011862A

PATIENT
  Age: 57 Year
  Sex: Male

DRUGS (4)
  1. LOVAZA [Suspect]
     Indication: BLOOD TRIGLYCERIDES INCREASED
     Dosage: 2G TWICE PER DAY
     Route: 048
     Dates: start: 2008
  2. INSULIN LANTUS [Concomitant]
  3. METFORMIN [Concomitant]
  4. ZEGERID [Concomitant]

REACTIONS (1)
  - Pancreatitis [Recovering/Resolving]
